FAERS Safety Report 9280948 (Version 1)
Quarter: 2013Q2

REPORT INFORMATION
  Report Type: Spontaneous
  Country: JP (occurrence: JP)
  Receive Date: 20130509
  Receipt Date: 20130509
  Transmission Date: 20140414
  Serious: Yes (Death, Hospitalization)
  Sender: FDA-Public Use
  Company Number: JP-JNJFOC-20130415008

PATIENT
  Age: 76 Year
  Sex: Male
  Weight: 51.53 kg

DRUGS (13)
  1. SERENACE [Suspect]
     Indication: DELIRIUM
     Route: 048
     Dates: start: 20120529, end: 20120531
  2. HALOPERIDOL [Suspect]
     Indication: DELIRIUM
     Route: 042
     Dates: start: 20120531
  3. CRIZOTINIB [Suspect]
     Indication: NON-SMALL CELL LUNG CANCER
     Route: 048
     Dates: start: 20120528, end: 20120531
  4. TAMSULOSIN HYDROCHLORIDE [Concomitant]
     Indication: BENIGN PROSTATIC HYPERPLASIA
     Route: 048
  5. DIOVAN [Concomitant]
     Indication: HYPERTENSION
     Route: 048
     Dates: start: 20120120
  6. LOXOPROFEN [Concomitant]
     Indication: CANCER PAIN
     Route: 048
  7. PROTECADIN [Concomitant]
     Indication: GASTRITIS PROPHYLAXIS
     Route: 048
     Dates: start: 20120106
  8. S. ADCHNON [Concomitant]
     Indication: HAEMOPTYSIS
     Route: 048
     Dates: start: 20111220
  9. TRANSAMIN [Concomitant]
     Indication: HAEMOPTYSIS
     Route: 048
     Dates: start: 20111220
  10. MAGMITT [Concomitant]
     Indication: CONSTIPATION
     Route: 048
     Dates: start: 20120108
  11. OXYCODONE [Concomitant]
     Indication: CANCER PAIN
     Route: 048
  12. SENNOSIDE [Concomitant]
     Indication: CONSTIPATION
     Route: 048
     Dates: start: 20120108
  13. OXINORM [Concomitant]
     Indication: CANCER PAIN
     Route: 048
     Dates: start: 20120214

REACTIONS (3)
  - Pneumonitis [Fatal]
  - Delirium [Unknown]
  - Incorrect route of drug administration [Unknown]
